FAERS Safety Report 6979488-8 (Version None)
Quarter: 2010Q3

REPORT INFORMATION
  Report Type: 
  Country: None (occurrence: None)
  Receive Date: 20100913
  Receipt Date: 20100902
  Transmission Date: 20110219
  Serious: Yes (Death, Hospitalization)
  Sender: FDA-Public Use
  Company Number: US-BAXTER-2010BH022233

PATIENT
  Age: 64 Year
  Sex: Female

DRUGS (1)
  1. DIANEAL [Suspect]
     Indication: PERITONEAL DIALYSIS
     Route: 033
     Dates: start: 20021001, end: 20100825

REACTIONS (3)
  - CHOLECYSTITIS [None]
  - SEPSIS [None]
  - URINARY TRACT INFECTION [None]
